FAERS Safety Report 11743495 (Version 1)
Quarter: 2015Q4

REPORT INFORMATION
  Report Type: Spontaneous
  Country: US (occurrence: US)
  Receive Date: 20151116
  Receipt Date: 20151116
  Transmission Date: 20160304
  Serious: No
  Sender: FDA-Public Use
  Company Number: US-IMPAX LABORATORIES, INC-2015-IPXL-00730

PATIENT
  Sex: Female
  Weight: 86.17 kg

DRUGS (1)
  1. LORATADINE ODT [Suspect]
     Active Substance: LORATADINE
     Indication: HYPERSENSITIVITY
     Dosage: 1 TABLET ONCE DAILY
     Route: 048

REACTIONS (1)
  - Drug ineffective [Unknown]
